FAERS Safety Report 6572191-8 (Version None)
Quarter: 2010Q1

REPORT INFORMATION
  Report Type: 
  Country: None (occurrence: None)
  Receive Date: 20100205
  Receipt Date: 20100127
  Transmission Date: 20100710
  Serious: Yes (Other)
  Sender: FDA-Public Use
  Company Number: PHEH2010US01488

PATIENT
  Sex: Male

DRUGS (18)
  1. MYFORTIC [Suspect]
     Indication: RENAL TRANSPLANT
     Dosage: UNK
  2. PROGRAF [Suspect]
     Indication: RENAL TRANSPLANT
     Dosage: UNK, UNK
  3. STEROIDS NOS [Suspect]
     Indication: RENAL TRANSPLANT
     Dosage: UNK, UNK
  4. FOSAMAX [Suspect]
     Dosage: 70 MG, UNK
  5. CALCIUM W/VITAMIN D NOS [Suspect]
     Dosage: UNK, UNK
  6. AMLODIPINE BESYLATE [Concomitant]
     Dosage: UNK, UNK
  7. ALLOPURINOL [Concomitant]
     Dosage: UNK, UNK
  8. ASPIRIN [Concomitant]
     Dosage: UNK, UNK
  9. SENSIPAR [Concomitant]
     Dosage: UNK, UNK
  10. AVODART [Concomitant]
  11. LOPRESSOR [Concomitant]
     Dosage: UNK, UNK
  12. MESTINON [Concomitant]
     Dosage: UNK, UNK
  13. TIMESPAN [Concomitant]
     Dosage: UNK, UNK
  14. PANCREASE [Concomitant]
     Dosage: UNK, UNK
  15. FLOMAX [Concomitant]
     Dosage: UNK, UNK
  16. VITAMIN D [Concomitant]
     Dosage: UNK, UNK
  17. MAGNESIUM [Concomitant]
     Dosage: UNK, UNK
  18. FOLIC ACID [Concomitant]
     Dosage: UNK, UNK

REACTIONS (2)
  - BLOOD CALCIUM INCREASED [None]
  - OSTEOPOROSIS [None]
